FAERS Safety Report 5291814-7 (Version None)
Quarter: 2007Q2

REPORT INFORMATION
  Report Type: 
  Country: None (occurrence: None)
  Receive Date: 20070406
  Receipt Date: 20070406
  Transmission Date: 20071010
  Serious: Yes (Life-Threatening)
  Sender: FDA-Public Use
  Company Number: None

PATIENT
  Age: 49 Year
  Sex: Female
  Weight: 72.1219 kg

DRUGS (2)
  1. GEMCITABINE HCL [Suspect]
     Indication: BREAST CANCER METASTATIC
     Dosage: 1480 1295, 925 D1, D8  Q3WKS AS CTS PERMITTED IV
     Route: 042
     Dates: start: 20060906, end: 20070124
  2. CARBOPLATIN [Suspect]
     Indication: BREAST CANCER METASTATIC
     Dosage: 300, 260, 185 Q3 WKS AS CTS PERMITTED IV
     Route: 042
     Dates: start: 20060906, end: 20070124

REACTIONS (5)
  - HEPATIC CIRRHOSIS [None]
  - HYPERSPLENISM [None]
  - PANCYTOPENIA [None]
  - PORTAL HYPERTENSION [None]
  - SPLENOMEGALY [None]
